FAERS Safety Report 9767126 (Version 1)
Quarter: 2013Q4

REPORT INFORMATION
  Report Type: Spontaneous
  Country: US (occurrence: US)
  Receive Date: 20131217
  Receipt Date: 20131217
  Transmission Date: 20140711
  Serious: No
  Sender: FDA-Public Use
  Company Number: US-GLAXOSMITHKLINE-A1040506A

PATIENT
  Age: 69 Year
  Sex: Male

DRUGS (10)
  1. MULTIVITAMIN [Concomitant]
  2. PRADAXA [Concomitant]
  3. ATENOLOL [Concomitant]
  4. PROTONIX [Concomitant]
  5. PENICILLIN VK [Concomitant]
  6. AZITHROMYCIN [Concomitant]
  7. ACYCLOVIR [Concomitant]
  8. VOTRIENT [Suspect]
     Indication: NEUROENDOCRINE CARCINOMA OF THE SKIN
     Dosage: 800MG PER DAY
     Route: 048
     Dates: start: 20130608, end: 201308
  9. OMEGA 3 [Concomitant]
  10. CALCIUM [Concomitant]

REACTIONS (1)
  - Treatment failure [Unknown]
